FAERS Safety Report 19822565 (Version 1)
Quarter: 2021Q3

REPORT INFORMATION
  Report Type: Spontaneous
  Country: GB (occurrence: GB)
  Receive Date: 20210913
  Receipt Date: 20210913
  Transmission Date: 20211014
  Serious: Yes (Other)
  Sender: FDA-Public Use
  Company Number: GB-MYLANLABS-2021M1060751

PATIENT
  Sex: Male

DRUGS (5)
  1. CLOZARIL [Suspect]
     Active Substance: CLOZAPINE
     Dosage: 200 MILLIGRAM, BID (200MG AT 08:00 AND 200MG AT 18:00)
     Route: 048
  2. SODIUM VALPROATE [Concomitant]
     Active Substance: VALPROATE SODIUM
     Dosage: 25 MILLILITER, BID ((1G) 25ML BD)
  3. SODIUM VALPROATE [Concomitant]
     Active Substance: VALPROATE SODIUM
     Dosage: 200MG AT 08:00 AND400MG AT 18:00
  4. CLOZARIL [Suspect]
     Active Substance: CLOZAPINE
     Dosage: 350MG OM, 200MG EVENING
  5. CLOZARIL [Suspect]
     Active Substance: CLOZAPINE
     Indication: SCHIZOPHRENIA
     Dosage: UNK
     Route: 048
     Dates: start: 20190328

REACTIONS (3)
  - Seizure [Unknown]
  - Sedation [Recovering/Resolving]
  - Contraindicated product administered [Unknown]
